FAERS Safety Report 9159916 (Version 1)
Quarter: 2013Q1

REPORT INFORMATION
  Report Type: Spontaneous
  Country: US (occurrence: None)
  Receive Date: 20130214
  Receipt Date: 20130214
  Transmission Date: 20140127
  Serious: Yes (Other)
  Sender: FDA-Public Use
  Company Number: 13-001-011

PATIENT
  Age: 62 Year
  Sex: Female
  Weight: 82.56 kg

DRUGS (3)
  1. AZELAIC ACID [Suspect]
     Indication: ROSACEA
     Route: 061
     Dates: start: 20130122, end: 20130123
  2. LISINOPRIL [Concomitant]
  3. PROSACEA [Concomitant]

REACTIONS (2)
  - Mammogram abnormal [None]
  - Breast cancer female [None]
